FAERS Safety Report 5972755-6 (Version None)
Quarter: 2008Q4

REPORT INFORMATION
  Report Type: 
  Country: None (occurrence: None)
  Receive Date: 20081126
  Receipt Date: 20081126
  Transmission Date: 20090506
  Serious: Yes (Death)
  Sender: FDA-Public Use
  Company Number: None

PATIENT
  Age: 56 Year
  Sex: Male

DRUGS (13)
  1. WARFARIN SODIUM [Suspect]
     Indication: ATRIAL FIBRILLATION
     Dosage: UNK DAILY PO
     Route: 048
  2. PLAVIX [Suspect]
     Indication: CORONARY ARTERY DISEASE
     Dosage: 75MG DAILY PO
     Route: 048
  3. ASPIRIN [Suspect]
     Indication: CORONARY ARTERY DISEASE
     Dosage: 81MG RESPECTIVLEY DAILY PO
     Route: 048
  4. ZYRTEC [Concomitant]
  5. ACTOS [Concomitant]
  6. METOPROLOL TARTRATE [Concomitant]
  7. SIMVASTATIN [Concomitant]
  8. CYMBALTA [Concomitant]
  9. GLIPIZIDE [Concomitant]
  10. OMEPRAZOLE [Concomitant]
  11. ISISORBIDE DINITRATE [Concomitant]
  12. ASPIRIN [Concomitant]
  13. WARFARIN SODIUM [Concomitant]

REACTIONS (8)
  - DEPRESSED LEVEL OF CONSCIOUSNESS [None]
  - GAIT DISTURBANCE [None]
  - HAEMORRHAGE INTRACRANIAL [None]
  - HYPERTENSION [None]
  - HYPOAESTHESIA [None]
  - MYDRIASIS [None]
  - POSTURING [None]
  - UNRESPONSIVE TO STIMULI [None]
